FAERS Safety Report 17794932 (Version 1)
Quarter: 2020Q2

REPORT INFORMATION
  Report Type: Spontaneous
  Country: DE (occurrence: DE)
  Receive Date: 20200516
  Receipt Date: 20200516
  Transmission Date: 20200714
  Serious: Yes (Hospitalization)
  Sender: FDA-Public Use
  Company Number: DE-TEVA-2020-DE-1234379

PATIENT
  Age: 50 Year
  Sex: Male

DRUGS (1)
  1. PREDNISOLON [Suspect]
     Active Substance: PREDNISOLONE
     Route: 065

REACTIONS (3)
  - Muscle tightness [Unknown]
  - Hiccups [Unknown]
  - Paraesthesia [Unknown]
